FAERS Safety Report 8269193-2 (Version None)
Quarter: 2012Q2

REPORT INFORMATION
  Report Type: 
  Country: None (occurrence: None)
  Receive Date: 20120409
  Receipt Date: 20120402
  Transmission Date: 20120825
  Serious: Yes (Other)
  Sender: FDA-Public Use
  Company Number: PHHY2011DK32634

PATIENT
  Sex: Male

DRUGS (11)
  1. CYMBALTA [Suspect]
     Indication: NEURALGIA
     Dosage: 120 MG, UNK
     Route: 048
     Dates: start: 20090626, end: 20100226
  2. GABAPENTIN [Suspect]
  3. DIAZEPAM [Suspect]
     Indication: NEURALGIA
     Route: 048
     Dates: start: 20090101, end: 20100101
  4. METADONE [Concomitant]
     Indication: PAIN
     Dosage: 90 MG, UNK
     Dates: start: 20090626, end: 20100302
  5. DIAZEPAM [Suspect]
     Indication: PAIN
  6. GABAPENTIN [Suspect]
     Indication: NEURALGIA
     Dosage: 3600 MG, QID
     Route: 048
     Dates: start: 20090220, end: 20090912
  7. CYMBALTA [Suspect]
     Indication: PAIN
  8. ATORVASTATIN CALCIUM [Concomitant]
     Indication: BLOOD CHOLESTEROL
     Dosage: 80 MG, UNK
  9. HJERDYL [Concomitant]
     Dosage: 75 MG, UNK
  10. LYRICA [Concomitant]
     Indication: PAIN
     Dosage: 150 MG, BID
     Dates: start: 20090810, end: 20100226
  11. KETAMINE HCL [Concomitant]
     Indication: PAIN
     Dosage: 100 MG, UNK
     Dates: start: 20090626, end: 20100302

REACTIONS (5)
  - FINE MOTOR DELAY [None]
  - DRUG INEFFECTIVE [None]
  - DISTURBANCE IN ATTENTION [None]
  - ERECTILE DYSFUNCTION [None]
  - TOOTH DISORDER [None]
